FAERS Safety Report 8432057-5 (Version None)
Quarter: 2012Q2

REPORT INFORMATION
  Report Type: 
  Country: None (occurrence: None)
  Receive Date: 20120613
  Receipt Date: 20120530
  Transmission Date: 20120825
  Serious: Yes (Death, Hospitalization)
  Sender: FDA-Public Use
  Company Number: ES-CELGENEUS-144-21880-12053583

PATIENT
  Sex: Male
  Weight: 63.8 kg

DRUGS (6)
  1. ENALAPRIL MALEATE [Concomitant]
     Route: 065
     Dates: start: 20110715
  2. ASPIRIN [Concomitant]
     Indication: THROMBOSIS PROPHYLAXIS
     Route: 048
     Dates: start: 20110413, end: 20111229
  3. REVLIMID [Suspect]
     Indication: DIFFUSE LARGE B-CELL LYMPHOMA
     Route: 048
     Dates: start: 20110413, end: 20110707
  4. REVLIMID [Suspect]
     Dosage: 20 MILLIGRAM
     Route: 048
     Dates: start: 20110714
  5. INDAPAMID [Concomitant]
     Route: 065
     Dates: start: 20110915, end: 20120420
  6. REVLIMID [Suspect]
     Dosage: 20 MILLIGRAM
     Route: 048
     Dates: start: 20111201, end: 20111222

REACTIONS (1)
  - BONE MARROW FAILURE [None]
